FAERS Safety Report 10746655 (Version 2)
Quarter: 2015Q2

REPORT INFORMATION
  Report Type: Spontaneous
  Country: JP (occurrence: JP)
  Receive Date: 20150128
  Receipt Date: 20150401
  Transmission Date: 20150821
  Serious: Yes (Hospitalization)
  Sender: FDA-Public Use
  Company Number: JP-BRISTOL-MYERS SQUIBB COMPANY-BMS-2015-003581

PATIENT
  Age: 76 Year
  Sex: Male
  Weight: 39 kg

DRUGS (8)
  1. AMLODIPINE [Concomitant]
     Active Substance: AMLODIPINE BESYLATE
     Indication: HYPERTENSION
     Route: 065
  2. ERBITUX [Suspect]
     Active Substance: CETUXIMAB
     Indication: EAR NEOPLASM MALIGNANT
     Dosage: 400 MG/M2, UNK
     Route: 041
     Dates: start: 20130611, end: 20141126
  3. CDDP [Concomitant]
     Active Substance: CISPLATIN
     Indication: EAR NEOPLASM MALIGNANT
     Route: 041
  4. BLOPRESS [Concomitant]
     Active Substance: CANDESARTAN CILEXETIL
     Indication: HYPERTENSION
     Route: 065
  5. MINOMYCIN [Suspect]
     Active Substance: MINOCYCLINE HYDROCHLORIDE
     Indication: PRODUCT USED FOR UNKNOWN INDICATION
     Dosage: UNK
     Route: 065
     Dates: start: 20130702
  6. RINDERON VG [Suspect]
     Active Substance: BETAMETHASONE VALERATE\GENTAMICIN SULFATE
     Indication: EAR NEOPLASM MALIGNANT
     Dosage: UNK
     Route: 065
     Dates: start: 20130709
  7. 5-FU                               /00098801/ [Concomitant]
     Active Substance: FLUOROURACIL
     Indication: EAR NEOPLASM MALIGNANT
     Dosage: UNK
     Route: 041
     Dates: start: 20130711, end: 20130714
  8. TS-1 [Concomitant]
     Active Substance: GIMERACIL\OTERACIL\TEGAFUR
     Indication: EAR NEOPLASM MALIGNANT
     Dosage: UNK
     Route: 048
     Dates: start: 20130802, end: 20140331

REACTIONS (2)
  - Staphylococcus test positive [Unknown]
  - Pneumonia aspiration [Recovering/Resolving]

NARRATIVE: CASE EVENT DATE: 20140809
